FAERS Safety Report 6793375-X (Version None)
Quarter: 2010Q2

REPORT INFORMATION
  Report Type: 
  Country: None (occurrence: None)
  Receive Date: 20100624
  Receipt Date: 20100121
  Transmission Date: 20101027
  Serious: Yes (Other)
  Sender: FDA-Public Use
  Company Number: US-MYLANLABS-2010S1000500

PATIENT
  Age: 40 Year
  Sex: Male

DRUGS (5)
  1. CLOZAPINE [Suspect]
     Indication: SCHIZOPHRENIA, PARANOID TYPE
     Route: 048
     Dates: end: 20100111
  2. RISPERIDONE [Concomitant]
     Route: 048
  3. FOLIC ACID [Concomitant]
     Route: 048
  4. LORAZEPAM [Concomitant]
     Route: 048
  5. ZYPREXA [Concomitant]
     Route: 048

REACTIONS (1)
  - GRANULOCYTOPENIA [None]
